FAERS Safety Report 9431333 (Version 3)
Quarter: 2013Q4

REPORT INFORMATION
  Report Type: Spontaneous
  Country: CO (occurrence: CO)
  Receive Date: 20130730
  Receipt Date: 20131126
  Transmission Date: 20140711
  Serious: Yes (Other)
  Sender: FDA-Public Use
  Company Number: CO-BAXTER-2013BAX029207

PATIENT
  Age: 45 Year
  Sex: Female

DRUGS (1)
  1. TISSUCOL KIT ADHESIVO BIOL?GICO DE DOS COMPONENTES [Suspect]
     Indication: PRODUCT USED FOR UNKNOWN INDICATION
     Dates: start: 20130429, end: 20130429

REACTIONS (1)
  - Drug ineffective [Recovered/Resolved]
